FAERS Safety Report 18063465 (Version 18)
Quarter: 2024Q3

REPORT INFORMATION
  Report Type: Report from Study
  Country: DE (occurrence: DE)
  Receive Date: 20200724
  Receipt Date: 20240916
  Transmission Date: 20241017
  Serious: Yes (Hospitalization, Other)
  Sender: ROCHE
  Company Number: DE-ROCHE-2365577

PATIENT
  Age: 36 Year
  Sex: Female

DRUGS (13)
  1. OCREVUS [Suspect]
     Active Substance: OCRELIZUMAB
     Indication: Relapsing-remitting multiple sclerosis
     Dosage: 600 MG: 204 DAYS, 182 DAYS, 175 DAYS
     Route: 042
     Dates: start: 20190702
  2. OCREVUS [Suspect]
     Active Substance: OCRELIZUMAB
     Route: 042
     Dates: start: 20200129
  3. OCREVUS [Suspect]
     Active Substance: OCRELIZUMAB
     Route: 042
     Dates: start: 20210720
  4. OCREVUS [Suspect]
     Active Substance: OCRELIZUMAB
     Route: 042
     Dates: start: 20190702
  5. OCREVUS [Suspect]
     Active Substance: OCRELIZUMAB
     Route: 042
  6. CORTISONE [Suspect]
     Active Substance: CORTISONE
     Indication: Premedication
     Route: 065
  7. NAPROXEN [Concomitant]
     Active Substance: NAPROXEN
     Route: 065
  8. SUMATRIPTAN [Concomitant]
     Active Substance: SUMATRIPTAN\SUMATRIPTAN SUCCINATE
     Dosage: AS REQUIRED
  9. METAMIZOLE [Concomitant]
     Active Substance: METAMIZOLE
     Dosage: 4 X 30
     Route: 065
  10. IBUPROFEN [Concomitant]
     Active Substance: IBUPROFEN
     Dosage: FREQUENCY TEXT:PRN
  11. MESALAMINE [Concomitant]
     Active Substance: MESALAMINE
  12. MEBEVERINE [Concomitant]
     Active Substance: MEBEVERINE
  13. PSYLLIUM [Concomitant]
     Active Substance: PLANTAGO SEED

REACTIONS (49)
  - Vaginal haemorrhage [Recovered/Resolved]
  - Vulvovaginal mycotic infection [Recovered/Resolved]
  - Dizziness [Recovered/Resolved]
  - Intermenstrual bleeding [Not Recovered/Not Resolved]
  - Infection susceptibility increased [Not Recovered/Not Resolved]
  - Nasopharyngitis [Recovered/Resolved]
  - Bacterial infection [Recovered/Resolved]
  - Visual impairment [Not Recovered/Not Resolved]
  - Rales [Unknown]
  - Headache [Recovered/Resolved]
  - Migraine [Recovered/Resolved]
  - Faeces discoloured [Recovering/Resolving]
  - Disturbance in attention [Not Recovered/Not Resolved]
  - Optic nerve injury [Not Recovered/Not Resolved]
  - Dyspnoea exertional [Recovering/Resolving]
  - Hypersensitivity [Unknown]
  - Oropharyngeal pain [Recovering/Resolving]
  - Cystitis [Recovered/Resolved]
  - Anal incontinence [Recovered/Resolved]
  - Intervertebral disc protrusion [Recovering/Resolving]
  - Peripheral swelling [Recovered/Resolved]
  - Insomnia [Recovered/Resolved]
  - Cystitis noninfective [Recovered/Resolved]
  - COVID-19 [Recovered/Resolved]
  - Peripheral swelling [Not Recovered/Not Resolved]
  - Feeling hot [Not Recovered/Not Resolved]
  - Fatigue [Not Recovered/Not Resolved]
  - Haemorrhoids thrombosed [Recovered/Resolved]
  - Hypokinesia [Recovered/Resolved]
  - Neck pain [Recovering/Resolving]
  - Arthralgia [Recovered/Resolved]
  - Amenorrhoea [Not Recovered/Not Resolved]
  - Heart rate increased [Not Recovered/Not Resolved]
  - Visual impairment [Not Recovered/Not Resolved]
  - Palpitations [Recovering/Resolving]
  - Back pain [Recovering/Resolving]
  - Constipation [Not Recovered/Not Resolved]
  - Faeces soft [Recovered/Resolved]
  - Cataract [Not Recovered/Not Resolved]
  - Foreign body sensation in eyes [Not Recovered/Not Resolved]
  - Erythema [Recovered/Resolved]
  - Feeling hot [Recovered/Resolved]
  - Tachycardia [Recovered/Resolved]
  - Intermenstrual bleeding [Recovered/Resolved]
  - Hypertension [Recovered/Resolved]
  - Restless legs syndrome [Unknown]
  - Weight increased [Recovering/Resolving]
  - Hypothyroidism [Unknown]
  - Blood pressure increased [Recovered/Resolved]

NARRATIVE: CASE EVENT DATE: 20190702
